FAERS Safety Report 8071362-1 (Version None)
Quarter: 2012Q1

REPORT INFORMATION
  Report Type: 
  Country: None (occurrence: None)
  Receive Date: 20120125
  Receipt Date: 20120117
  Transmission Date: 20120608
  Serious: Yes (Other)
  Sender: FDA-Public Use
  Company Number: IN-ROXANE LABORATORIES, INC.-2012-RO-00488RO

PATIENT
  Age: 24 Year
  Sex: Male

DRUGS (2)
  1. AZATHIOPRINE [Suspect]
     Indication: TYPE 2 LEPRA REACTION
     Dosage: 100 MG
  2. PREDNISOLONE [Suspect]
     Indication: TYPE 2 LEPRA REACTION

REACTIONS (3)
  - CHROMOBLASTOMYCOSIS [None]
  - FUNGAL SKIN INFECTION [None]
  - BONE MARROW FAILURE [None]
